FAERS Safety Report 23636330 (Version 1)
Quarter: 2024Q1

REPORT INFORMATION
  Report Type: Spontaneous
  Country: US (occurrence: None)
  Receive Date: 20240314
  Receipt Date: 20240314
  Transmission Date: 20240410
  Serious: No
  Sender: FDA-Public Use
  Company Number: None

PATIENT
  Age: 45 Year
  Sex: Male
  Weight: 78.2 kg

DRUGS (1)
  1. HUMATIN [Suspect]
     Active Substance: PAROMOMYCIN SULFATE
     Indication: Amoebic dysentery
     Dosage: 750 MG TID ORAL
     Route: 048
     Dates: start: 20240302, end: 20240309

REACTIONS (1)
  - Diarrhoea [None]

NARRATIVE: CASE EVENT DATE: 20240303
